FAERS Safety Report 5290633-5 (Version None)
Quarter: 2007Q2

REPORT INFORMATION
  Report Type: 
  Country: None (occurrence: None)
  Receive Date: 20070409
  Receipt Date: 20070405
  Transmission Date: 20071010
  Serious: Yes (Hospitalization)
  Sender: FDA-Public Use
  Company Number: TH-GLAXOSMITHKLINE-A0628535A

PATIENT
  Age: 55 Year
  Sex: Female
  Weight: 57 kg

DRUGS (2)
  1. LAPATINIB [Suspect]
     Dosage: 1500MG PER DAY
     Route: 048
     Dates: start: 20061011
  2. PACLITAXEL [Suspect]
     Dosage: 80MGM2 CYCLIC
     Route: 042
     Dates: start: 20061011

REACTIONS (4)
  - CHILLS [None]
  - ESCHERICHIA BACTERAEMIA [None]
  - HYPOTENSION [None]
  - PYREXIA [None]
